FAERS Safety Report 18663821 (Version 1)
Quarter: 2020Q4

REPORT INFORMATION
  Report Type: Spontaneous
  Country: GB (occurrence: GB)
  Receive Date: 20201224
  Receipt Date: 20201224
  Transmission Date: 20210114
  Serious: Yes (Other)
  Sender: FDA-Public Use
  Company Number: GB-AUROBINDO-AUR-APL-2020-062579

PATIENT
  Age: 22 Year
  Sex: Female
  Weight: 43.08 kg

DRUGS (1)
  1. LAMOTRIGINE. [Suspect]
     Active Substance: LAMOTRIGINE
     Indication: EPILEPSY
     Dosage: 150 MILLIGRAM
     Route: 048
     Dates: start: 20190310

REACTIONS (7)
  - Eye movement disorder [Not Recovered/Not Resolved]
  - Heart rate increased [Recovered/Resolved]
  - Ataxia [Not Recovered/Not Resolved]
  - Migraine [Not Recovered/Not Resolved]
  - Fine motor skill dysfunction [Unknown]
  - Balance disorder [Not Recovered/Not Resolved]
  - Coordination abnormal [Unknown]
